FAERS Safety Report 7217835-2 (Version None)
Quarter: 2011Q1

REPORT INFORMATION
  Report Type: 
  Country: None (occurrence: None)
  Receive Date: 20110110
  Receipt Date: 20101227
  Transmission Date: 20110831
  Serious: Yes (Other)
  Sender: FDA-Public Use
  Company Number: PHHY2010FR90215

PATIENT
  Age: 62 Year
  Sex: Female

DRUGS (6)
  1. DOXORUBICIN [Suspect]
  2. PREDNISONE [Suspect]
  3. TIENAM [Suspect]
     Indication: DIARRHOEA
     Dosage: 1 G, BID
     Dates: end: 20101023
  4. VANCOMYCIN [Suspect]
     Dosage: 1.5 G PER DAY
     Dates: end: 20101026
  5. AMIKLIN [Suspect]
     Indication: DIARRHOEA
  6. VINCRISTINE [Suspect]

REACTIONS (3)
  - OVERDOSE [None]
  - ENCEPHALOPATHY [None]
  - STATUS EPILEPTICUS [None]
